FAERS Safety Report 7314192-8 (Version None)
Quarter: 2011Q1

REPORT INFORMATION
  Report Type: 
  Country: None (occurrence: None)
  Receive Date: 20110225
  Receipt Date: 20100622
  Transmission Date: 20110831
  Serious: No
  Sender: FDA-Public Use
  Company Number: US-MYLANLABS-2010S1009762

PATIENT
  Age: 50 Year
  Sex: Female

DRUGS (2)
  1. AMNESTEEM [Suspect]
  2. AMLODIPINE [Concomitant]

REACTIONS (4)
  - PIGMENTATION DISORDER [None]
  - LIP DISCOLOURATION [None]
  - OCULAR ICTERUS [None]
  - LIP DRY [None]
